FAERS Safety Report 4888280-X (Version None)
Quarter: 2006Q1

REPORT INFORMATION
  Report Type: 
  Country: None (occurrence: None)
  Receive Date: 20060119
  Receipt Date: 20060119
  Transmission Date: 20060701
  Serious: Yes (Other)
  Sender: FDA-Public Use
  Company Number: None

PATIENT
  Sex: Male
  Weight: 16 kg

DRUGS (1)
  1. PENTOBARBITAL CAP [Suspect]
     Indication: NUCLEAR MAGNETIC RESONANCE IMAGING BRAIN
     Dosage: 30 MG X3 DOSES IV
     Route: 042
     Dates: start: 20051222

REACTIONS (7)
  - AGGRESSION [None]
  - AGITATION [None]
  - FATIGUE [None]
  - LETHARGY [None]
  - OXYGEN CONSUMPTION DECREASED [None]
  - PARADOXICAL DRUG REACTION [None]
  - PROCEDURAL COMPLICATION [None]
